FAERS Safety Report 14354942 (Version 2)
Quarter: 2018Q1

REPORT INFORMATION
  Report Type: Spontaneous
  Country: US (occurrence: US)
  Receive Date: 20180105
  Receipt Date: 20180129
  Transmission Date: 20180509
  Serious: No
  Sender: FDA-Public Use
  Company Number: US-009507513-1712USA003847

PATIENT
  Age: 59 Year
  Sex: Female

DRUGS (12)
  1. KEYTRUDA [Suspect]
     Active Substance: PEMBROLIZUMAB
     Indication: LUNG CANCER METASTATIC
     Dosage: 200 MG, Q3W
     Route: 042
     Dates: start: 20171003, end: 20171207
  2. ATIVAN [Concomitant]
     Active Substance: LORAZEPAM
  3. PHENERGAN [Concomitant]
     Active Substance: PROMETHAZINE HYDROCHLORIDE
  4. LASIX [Concomitant]
     Active Substance: FUROSEMIDE
  5. ZOFRAN [Concomitant]
     Active Substance: ONDANSETRON HYDROCHLORIDE
  6. VITAMINS (UNSPECIFIED) [Concomitant]
     Active Substance: VITAMINS
  7. POTASSIUM (UNSPECIFIED) [Concomitant]
     Active Substance: POTASSIUM
  8. HYZAAR [Concomitant]
     Active Substance: HYDROCHLOROTHIAZIDE\LOSARTAN POTASSIUM
  9. ZANTAC [Concomitant]
     Active Substance: RANITIDINE HYDROCHLORIDE
  10. KEYTRUDA [Suspect]
     Active Substance: PEMBROLIZUMAB
     Dosage: 200 MG, Q3W
     Route: 042
     Dates: start: 20171214
  11. TRAMADOL HYDROCHLORIDE. [Concomitant]
     Active Substance: TRAMADOL HYDROCHLORIDE
  12. PROAIR HFA [Concomitant]
     Active Substance: ALBUTEROL SULFATE

REACTIONS (6)
  - Oral pain [Recovering/Resolving]
  - Mouth ulceration [Recovering/Resolving]
  - Candida infection [Recovering/Resolving]
  - Stomatitis [Recovering/Resolving]
  - Feeding disorder [Not Recovered/Not Resolved]
  - Lichenification [Recovering/Resolving]

NARRATIVE: CASE EVENT DATE: 2017
